FAERS Safety Report 24248506 (Version 1)
Quarter: 2024Q3

REPORT INFORMATION
  Report Type: Spontaneous
  Country: CA (occurrence: CA)
  Receive Date: 20240826
  Receipt Date: 20240826
  Transmission Date: 20241017
  Serious: Yes (Other)
  Sender: AUROBINDO
  Company Number: CA-AUROBINDO-AUR-APL-2024-041559

PATIENT
  Age: 72 Year
  Sex: Female
  Weight: 57 kg

DRUGS (5)
  1. METFORMIN [Suspect]
     Active Substance: METFORMIN HYDROCHLORIDE
     Indication: Type 2 diabetes mellitus
     Dosage: 1000 MILLIGRAM, TWO TIMES A DAY
     Route: 048
  2. INSULIN LISPRO [Suspect]
     Active Substance: INSULIN LISPRO
     Indication: Type 2 diabetes mellitus
     Dosage: 50 INTERNATIONAL UNIT, TWO TIMES A DAY
     Route: 058
  3. JARDIANCE [Suspect]
     Active Substance: EMPAGLIFLOZIN
     Indication: Type 2 diabetes mellitus
     Dosage: 10 MILLIGRAM, ONCE A DAY
     Route: 048
  4. SEMAGLUTIDE [Suspect]
     Active Substance: SEMAGLUTIDE
     Indication: Type 2 diabetes mellitus
     Dosage: UNK
     Route: 058
  5. SEMAGLUTIDE [Suspect]
     Active Substance: SEMAGLUTIDE
     Dosage: 0.5 MILLIGRAM, EVERY WEEK
     Route: 058

REACTIONS (2)
  - Hypoglycaemia [Not Recovered/Not Resolved]
  - Otitis externa [Not Recovered/Not Resolved]
